FAERS Safety Report 8257227-0 (Version None)
Quarter: 2012Q2

REPORT INFORMATION
  Report Type: 
  Country: None (occurrence: None)
  Receive Date: 20120403
  Receipt Date: 20120326
  Transmission Date: 20120825
  Serious: Yes (Death, Hospitalization)
  Sender: FDA-Public Use
  Company Number: JP-AMGEN-JPNCT2011025316

PATIENT
  Age: 78 Year
  Sex: Male
  Weight: 59 kg

DRUGS (18)
  1. FLUOROURACIL [Suspect]
     Indication: COLORECTAL CANCER
     Dosage: 320 MG/M2, Q2WK
     Route: 040
     Dates: start: 20100928, end: 20110727
  2. FLUOROURACIL [Suspect]
     Dosage: 1920 MG/M2, Q2WK
     Route: 041
     Dates: start: 20100928, end: 20110727
  3. LASIX [Concomitant]
     Route: 048
  4. IRINOTECAN HCL [Suspect]
     Dosage: 150 MG/M2, Q2WK
     Route: 041
     Dates: start: 20110728
  5. FLUOROURACIL [Suspect]
     Dosage: 400 MG/M2, Q2WK
     Route: 040
     Dates: start: 20110728
  6. BLOPRESS D [Concomitant]
     Dosage: 8 MG, QD
     Route: 048
  7. CORTICOSTEROIDS [Concomitant]
     Indication: PROPHYLAXIS
     Dosage: UNK
     Route: 065
  8. PANITUMUMAB [Suspect]
     Dosage: 6 MG/KG, Q2WK
     Route: 041
     Dates: start: 20110411, end: 20110502
  9. FLUOROURACIL [Suspect]
     Dosage: 2400 MG/M2, Q2WK
     Route: 041
     Dates: start: 20110728
  10. PANITUMUMAB [Suspect]
     Dosage: 6 MG/KG, Q2WK
     Route: 041
     Dates: start: 20101115, end: 20110317
  11. PANITUMUMAB [Suspect]
     Indication: COLORECTAL CANCER
     Dosage: 6 MG/KG, Q2WK
     Route: 041
     Dates: start: 20100928, end: 20110928
  12. PANITUMUMAB [Suspect]
     Dosage: 6 MG/KG, Q2WK
     Route: 041
     Dates: start: 20101021, end: 20101021
  13. PANITUMUMAB [Suspect]
     Dosage: 6 MG/KG, Q2WK
     Route: 041
     Dates: start: 20110524
  14. IRINOTECAN HCL [Suspect]
     Indication: COLORECTAL CANCER
     Dosage: 120 MG/M2, Q2WK
     Route: 041
     Dates: start: 20100928, end: 20110727
  15. LEUCOVORIN CALCIUM [Suspect]
     Indication: COLORECTAL CANCER
     Dosage: 200 MG/M2, Q2WK
     Route: 041
     Dates: start: 20100928
  16. ANTIHISTAMINES [Concomitant]
     Indication: PROPHYLAXIS
     Dosage: UNK
     Route: 065
  17. LOSARTAN POTASSIUM AND HYDROCHLOROTHIAZIDE [Concomitant]
     Dosage: UNK UNK, QD
     Route: 048
  18. AMLODIPINE [Concomitant]
     Dosage: 7.5 MG, QD
     Route: 048

REACTIONS (6)
  - DERMATITIS ACNEIFORM [None]
  - CONDITION AGGRAVATED [None]
  - PRURITUS [None]
  - HYPOMAGNESAEMIA [None]
  - FEBRILE NEUTROPENIA [None]
  - COLORECTAL CANCER [None]
